FAERS Safety Report 6034532-X (Version None)
Quarter: 2009Q1

REPORT INFORMATION
  Report Type: 
  Country: None (occurrence: None)
  Receive Date: 20090108
  Receipt Date: 20081224
  Transmission Date: 20090719
  Serious: Yes (Life-Threatening, Hospitalization)
  Sender: FDA-Public Use
  Company Number: 110464

PATIENT
  Age: 2 Year
  Sex: Female

DRUGS (4)
  1. NAPROXEN [Suspect]
     Indication: MUSCULOSKELETAL STIFFNESS
     Dosage: ORAL
     Route: 048
  2. NAPROXEN [Suspect]
     Indication: PAIN
     Dosage: ORAL
     Route: 048
  3. METHOTREXATE [Suspect]
     Indication: JUVENILE ARTHRITIS
     Dosage: 5 MG-7.5 MG/ WEEKLY
  4. FOLIC ACID [Concomitant]

REACTIONS (8)
  - HEPATITIS [None]
  - HYPERAMMONAEMIA [None]
  - HYPOGLYCAEMIA [None]
  - LETHARGY [None]
  - RESPIRATORY DISORDER [None]
  - THERAPEUTIC AGENT TOXICITY [None]
  - VIRAL INFECTION [None]
  - VOMITING [None]
